FAERS Safety Report 23534078 (Version 1)
Quarter: 2024Q1

REPORT INFORMATION
  Report Type: Report from Study
  Country: US (occurrence: US)
  Receive Date: 20240216
  Receipt Date: 20240216
  Transmission Date: 20240409
  Serious: Yes (Other)
  Sender: FDA-Public Use
  Company Number: US-GILEAD-2024-0662396

PATIENT
  Sex: Female

DRUGS (3)
  1. AMBRISENTAN [Suspect]
     Active Substance: AMBRISENTAN
     Indication: Pulmonary hypertension
     Dosage: 10 MG, QD
     Route: 065
     Dates: start: 20160302
  2. TADALAFIL [Concomitant]
     Active Substance: TADALAFIL
  3. XARELTO [Concomitant]
     Active Substance: RIVAROXABAN

REACTIONS (1)
  - Cataract [Unknown]
